FAERS Safety Report 11391311 (Version 1)
Quarter: 2015Q3

REPORT INFORMATION
  Report Type: Spontaneous
  Country: US (occurrence: None)
  Receive Date: 20150814
  Receipt Date: 20150814
  Transmission Date: 20151125
  Serious: No
  Sender: FDA-Public Use
  Company Number: None

PATIENT
  Sex: Male

DRUGS (3)
  1. RANITIDINE [Concomitant]
     Active Substance: RANITIDINE\RANITIDINE HYDROCHLORIDE
  2. METHOTREXATE [Concomitant]
     Active Substance: METHOTREXATE
  3. ENBREL [Suspect]
     Active Substance: ETANERCEPT
     Indication: RHEUMATOID ARTHRITIS
     Dosage: 0.5ML TWICE WEEKLY INJECT INTO SKIN
     Dates: start: 20080429

REACTIONS (1)
  - Rheumatoid arthritis [None]
